FAERS Safety Report 9540205 (Version 1)
Quarter: 2013Q3

REPORT INFORMATION
  Report Type: Spontaneous
  Country: BR (occurrence: BR)
  Receive Date: 20130920
  Receipt Date: 20130920
  Transmission Date: 20140515
  Serious: Yes (Other)
  Sender: FDA-Public Use
  Company Number: BR-BRISTOL-MYERS SQUIBB COMPANY-19398205

PATIENT
  Age: 59 Year
  Sex: Female
  Weight: 77 kg

DRUGS (4)
  1. ONGLYZA TABS 5 MG [Suspect]
     Dosage: 1DF=5 MG TABLET?ONE TABLET ORALLY IN THE MORNING
     Route: 048
  2. KOMBIGLYZE XR [Suspect]
     Dosage: 1 DF=5 MG/1000 MG TABLET
  3. GLIFAGE [Concomitant]
  4. INSULIN [Concomitant]

REACTIONS (3)
  - Tendonitis [Recovered/Resolved]
  - Gastrooesophageal reflux disease [Unknown]
  - Vomiting [Unknown]
